FAERS Safety Report 8844330 (Version 3)
Quarter: 2012Q4

REPORT INFORMATION
  Report Type: 
  Country: US (occurrence: None)
  Receive Date: 20121016
  Receipt Date: 20121214
  Transmission Date: 20130627
  Serious: Yes (Hospitalization)
  Sender: FDA-Public Use
  Company Number: None

PATIENT
  Age: 79 Year
  Sex: Male

DRUGS (1)
  1. OMNIPAQUE [Suspect]
     Indication: BACK PAIN

REACTIONS (4)
  - Post procedural infection [None]
  - Abscess [None]
  - Osteomyelitis [None]
  - Intervertebral discitis [None]
